FAERS Safety Report 10025613 (Version 1)
Quarter: 2014Q1

REPORT INFORMATION
  Report Type: Spontaneous
  Country: US (occurrence: None)
  Receive Date: 20140319
  Receipt Date: 20140319
  Transmission Date: 20141002
  Serious: Yes (Life-Threatening, Hospitalization)
  Sender: FDA-Public Use
  Company Number: None

PATIENT
  Age: 75 Year
  Sex: Male
  Weight: 92 kg

DRUGS (1)
  1. METHOTREXATE [Suspect]
     Indication: RHEUMATOID ARTHRITIS
     Dosage: 1 TABLET
     Route: 048
     Dates: start: 20050929, end: 20130930

REACTIONS (6)
  - Respiratory failure [None]
  - Immunosuppression [None]
  - Leukocytosis [None]
  - Gastrooesophageal reflux disease [None]
  - Lung infiltration [None]
  - Traumatic lung injury [None]
